FAERS Safety Report 11306534 (Version 2)
Quarter: 2015Q3

REPORT INFORMATION
  Report Type: Spontaneous
  Country: GB (occurrence: GB)
  Receive Date: 20150723
  Receipt Date: 20150818
  Transmission Date: 20151125
  Serious: Yes (Disabling, Other)
  Sender: FDA-Public Use
  Company Number: GB-BAYER-2015-378885

PATIENT
  Age: 31 Year
  Sex: Male
  Weight: 67 kg

DRUGS (5)
  1. SODIUM BICARBONATE. [Concomitant]
     Active Substance: SODIUM BICARBONATE
  2. VITAMIN D [Concomitant]
     Active Substance: CHOLECALCIFEROL
  3. PARACETAMOL [Concomitant]
     Active Substance: ACETAMINOPHEN
     Dosage: UNK
  4. COD LIVER OIL [Concomitant]
     Active Substance: COD LIVER OIL
     Dosage: UNK
  5. CIPROFLOXACIN MONOHYDROCHLORIDE [Suspect]
     Active Substance: CIPROFLOXACIN
     Indication: PROSTATITIS
     Dosage: 250 MG, UNK
     Route: 048
     Dates: start: 20150323, end: 20150412

REACTIONS (13)
  - Dizziness [Not Recovered/Not Resolved]
  - Testicular pain [Recovering/Resolving]
  - Muscular weakness [Not Recovered/Not Resolved]
  - Malaise [Not Recovered/Not Resolved]
  - Muscle fatigue [Not Recovered/Not Resolved]
  - Hyperventilation [Recovered/Resolved with Sequelae]
  - Confusional state [Not Recovered/Not Resolved]
  - Body temperature fluctuation [Not Recovered/Not Resolved]
  - Fatigue [Not Recovered/Not Resolved]
  - Rash [Unknown]
  - Myalgia [Not Recovered/Not Resolved]
  - Back pain [Not Recovered/Not Resolved]
  - Muscle spasms [Not Recovered/Not Resolved]

NARRATIVE: CASE EVENT DATE: 20150327
